FAERS Safety Report 16783050 (Version 1)
Quarter: 2019Q3

REPORT INFORMATION
  Report Type: Spontaneous
  Country: DE (occurrence: DE)
  Receive Date: 20190906
  Receipt Date: 20190906
  Transmission Date: 20191005
  Serious: Yes (Other)
  Sender: FDA-Public Use
  Company Number: PHHY2019DE207391

PATIENT
  Sex: Female

DRUGS (1)
  1. ESTRAMON (ESTRADIOL) [Suspect]
     Active Substance: ESTRADIOL
     Indication: PRODUCT USED FOR UNKNOWN INDICATION
     Dosage: UNK
     Route: 065

REACTIONS (3)
  - Breast pain [Unknown]
  - Haemorrhage [Unknown]
  - Headache [Unknown]
